FAERS Safety Report 20878657 (Version 1)
Quarter: 2022Q2

REPORT INFORMATION
  Report Type: Spontaneous
  Country: US (occurrence: None)
  Receive Date: 20220526
  Receipt Date: 20220526
  Transmission Date: 20220720
  Serious: Yes (Death)
  Sender: FDA-Public Use
  Company Number: None

PATIENT
  Age: 63 Year
  Sex: Male
  Weight: 62.01 kg

DRUGS (15)
  1. CARBOPLATIN [Suspect]
     Active Substance: CARBOPLATIN
     Indication: Lung carcinoma cell type unspecified stage 0
     Dosage: OTHER FREQUENCY : Q21DAYS;?
     Route: 042
  2. DEXAMETHASONE SODIUM PHOSPHATE [Suspect]
     Active Substance: DEXAMETHASONE SODIUM PHOSPHATE
     Indication: Lung carcinoma cell type unspecified stage 0
     Dosage: OTHER FREQUENCY : Q21DAYS;?
     Route: 042
  3. DOCETAXEL [Concomitant]
     Active Substance: DOCETAXEL
  4. FOSAPREPITANT [Concomitant]
     Active Substance: FOSAPREPITANT
  5. KEYTRUDA [Concomitant]
     Active Substance: PEMBROLIZUMAB
  6. NEULASTA [Concomitant]
     Active Substance: PEGFILGRASTIM
  7. ONDANSETRON [Concomitant]
     Active Substance: ONDANSETRON
  8. PACLITAXEL [Concomitant]
     Active Substance: PACLITAXEL
  9. PALONESTRON [Concomitant]
  10. ALBUTEROL [Concomitant]
     Active Substance: ALBUTEROL
  11. NIFEDIPINE [Concomitant]
     Active Substance: NIFEDIPINE
  12. OXYGEN [Concomitant]
     Active Substance: OXYGEN
  13. PROCHLORPERAZINE [Concomitant]
     Active Substance: PROCHLORPERAZINE
  14. TRAMADOL [Concomitant]
     Active Substance: TRAMADOL
  15. TYLENOL [Concomitant]
     Active Substance: ACETAMINOPHEN

REACTIONS (1)
  - Death [None]
